FAERS Safety Report 8239318-3 (Version None)
Quarter: 2012Q1

REPORT INFORMATION
  Report Type: 
  Country: None (occurrence: None)
  Receive Date: 20120326
  Receipt Date: 20120315
  Transmission Date: 20120608
  Serious: Yes (Other)
  Sender: FDA-Public Use
  Company Number: 2012AT000115

PATIENT
  Age: 53 Year
  Sex: Male

DRUGS (2)
  1. TESTOSTERONE [Suspect]
     Indication: TRANSGENDER HORMONAL THERAPY
  2. LETROZOLE [Concomitant]

REACTIONS (2)
  - BREAST CANCER [None]
  - OESTROGEN RECEPTOR ASSAY POSITIVE [None]
